FAERS Safety Report 5440966-4 (Version None)
Quarter: 2007Q3

REPORT INFORMATION
  Report Type: 
  Country: None (occurrence: None)
  Receive Date: 20070831
  Receipt Date: 20070820
  Transmission Date: 20080115
  Serious: Yes (Hospitalization, Disabling, Other)
  Sender: FDA-Public Use
  Company Number: US-PFIZER INC-2007048216

PATIENT
  Sex: Male
  Weight: 88.5 kg

DRUGS (2)
  1. BEXTRA [Suspect]
     Indication: BACK PAIN
     Route: 048
  2. BEXTRA [Suspect]
     Indication: PAIN IN EXTREMITY

REACTIONS (7)
  - BACK PAIN [None]
  - CARDIAC FAILURE [None]
  - DEPRESSION [None]
  - MYOCARDIAL INFARCTION [None]
  - ORGAN FAILURE [None]
  - STEVENS-JOHNSON SYNDROME [None]
  - THROMBOSIS [None]
